FAERS Safety Report 8954549 (Version 3)
Quarter: 2013Q1

REPORT INFORMATION
  Report Type: Spontaneous
  Country: US (occurrence: US)
  Receive Date: 20121207
  Receipt Date: 20130329
  Transmission Date: 20140127
  Serious: Yes (Hospitalization)
  Sender: FDA-Public Use
  Company Number: US-ELI_LILLY_AND_COMPANY-US201211009121

PATIENT
  Age: 78 Year
  Sex: Female
  Weight: 52.15 kg

DRUGS (3)
  1. HUMALOG LISPRO [Suspect]
     Indication: DIABETES MELLITUS
     Dosage: UNK
  2. SOTALOL [Concomitant]
  3. ANTIHYPERTENSIVES [Concomitant]

REACTIONS (3)
  - Pain [Recovered/Resolved]
  - Breast mass [Recovered/Resolved]
  - Spinal fracture [Recovered/Resolved]
